FAERS Safety Report 8477146-4 (Version None)
Quarter: 2012Q2

REPORT INFORMATION
  Report Type: 
  Country: None (occurrence: None)
  Receive Date: 20120625
  Receipt Date: 20120625
  Transmission Date: 20120825
  Serious: No
  Sender: FDA-Public Use
  Company Number: None

PATIENT
  Sex: Female
  Weight: 74 kg

DRUGS (1)
  1. HERCEPTIN [Suspect]
     Dosage: 2354 MG
     Dates: end: 20120525

REACTIONS (4)
  - PROTEIN TOTAL DECREASED [None]
  - OEDEMA PERIPHERAL [None]
  - JOINT SWELLING [None]
  - RENAL FAILURE CHRONIC [None]
